FAERS Safety Report 16057422 (Version 1)
Quarter: 2019Q1

REPORT INFORMATION
  Report Type: Spontaneous
  Country: US (occurrence: US)
  Receive Date: 20190311
  Receipt Date: 20190311
  Transmission Date: 20190418
  Serious: No
  Sender: FDA-Public Use
  Company Number: US-PFIZER INC-2019101607

PATIENT
  Age: 17 Year
  Sex: Female

DRUGS (1)
  1. GENOTROPIN MQ [Suspect]
     Active Substance: SOMATROPIN
     Dosage: 1.4 MG, DAILY
     Dates: start: 20090524

REACTIONS (5)
  - Pain in extremity [Unknown]
  - Headache [Unknown]
  - Polyuria [Unknown]
  - Insulin-like growth factor decreased [Unknown]
  - Hypothyroidism [Unknown]
